APPROVED DRUG PRODUCT: MOXIFLOXACIN HYDROCHLORIDE
Active Ingredient: MOXIFLOXACIN HYDROCHLORIDE
Strength: EQ 0.5% BASE
Dosage Form/Route: SOLUTION/DROPS;OPHTHALMIC
Application: A202525 | Product #001 | TE Code: AT1
Applicant: REGCON HOLDINGS LLC
Approved: Mar 6, 2015 | RLD: No | RS: No | Type: RX